FAERS Safety Report 6136483-9 (Version None)
Quarter: 2009Q1

REPORT INFORMATION
  Report Type: 
  Country: None (occurrence: None)
  Receive Date: 20090217
  Receipt Date: 20080620
  Transmission Date: 20090719
  Serious: No
  Sender: FDA-Public Use
  Company Number: AEUSA200800143

PATIENT
  Age: 43 Year
  Sex: Female
  Weight: 69.4003 kg

DRUGS (4)
  1. PROLASTIN [Suspect]
     Indication: ALPHA-1 ANTI-TRYPSIN DEFICIENCY
     Dosage: 4000 MG; IX; IV
     Route: 042
     Dates: start: 20080201, end: 20080601
  2. ADVAIR HFA [Concomitant]
  3. SPIRIVA [Concomitant]
  4. ALBUTEROL [Concomitant]

REACTIONS (7)
  - DIZZINESS [None]
  - FLUSHING [None]
  - HEADACHE [None]
  - MUSCLE TIGHTNESS [None]
  - PRESYNCOPE [None]
  - SALIVARY HYPERSECRETION [None]
  - VERTIGO [None]
